FAERS Safety Report 14032274 (Version 1)
Quarter: 2017Q4

REPORT INFORMATION
  Report Type: Spontaneous
  Country: BR (occurrence: BR)
  Receive Date: 20171002
  Receipt Date: 20171002
  Transmission Date: 20180321
  Serious: Yes (Other)
  Sender: FDA-Public Use
  Company Number: BR-PFIZER INC-2017352853

PATIENT
  Age: 84 Year
  Sex: Male

DRUGS (2)
  1. SUTENT [Suspect]
     Active Substance: SUNITINIB MALATE
     Dosage: UNK
     Dates: start: 20170718
  2. SUTENT [Suspect]
     Active Substance: SUNITINIB MALATE
     Dosage: UNK

REACTIONS (20)
  - Hypertension [Unknown]
  - Insomnia [Unknown]
  - Malaise [Unknown]
  - Oropharyngeal pain [Unknown]
  - Dysphagia [Unknown]
  - Blood urine present [Unknown]
  - Mouth ulceration [Unknown]
  - Tremor [Unknown]
  - Feeling cold [Unknown]
  - Cough [Unknown]
  - Erysipelas [Unknown]
  - Yellow skin [Unknown]
  - Aphonia [Unknown]
  - Pyrexia [Unknown]
  - Limb injury [Unknown]
  - Pain in extremity [Unknown]
  - Seizure [Unknown]
  - Body temperature increased [Unknown]
  - Mouth injury [Unknown]
  - Stomatitis [Unknown]

NARRATIVE: CASE EVENT DATE: 2017
